FAERS Safety Report 24445398 (Version 1)
Quarter: 2024Q4

REPORT INFORMATION
  Report Type: Spontaneous
  Country: US (occurrence: None)
  Receive Date: 20241015
  Receipt Date: 20241015
  Transmission Date: 20250115
  Serious: Yes (Other)
  Sender: Public
  Company Number: None

PATIENT
  Age: 80 Year
  Sex: Male
  Weight: 92.25 kg

DRUGS (1)
  1. VYVGART [Suspect]
     Active Substance: EFGARTIGIMOD ALFA-FCAB
     Indication: Myasthenia gravis
     Dosage: OTHER FREQUENCY : WEEKLY;?
     Route: 042
     Dates: start: 20240806

REACTIONS (2)
  - Infusion site extravasation [None]
  - Infusion site swelling [None]

NARRATIVE: CASE EVENT DATE: 20241015
